FAERS Safety Report 5714727-2 (Version None)
Quarter: 2008Q2

REPORT INFORMATION
  Report Type: 
  Country: None (occurrence: None)
  Receive Date: 20080423
  Receipt Date: 20040923
  Transmission Date: 20081010
  Serious: Yes (Death)
  Sender: FDA-Public Use
  Company Number: DE-ROCHE-381267

PATIENT
  Sex: Male
  Weight: 76 kg

DRUGS (9)
  1. CAPECITABINE [Suspect]
     Indication: GASTRIC CANCER
     Dosage: RECEIVED DAY 1-14 PER 21 DAY CYCLE, DOSE PER PROTOCOL, ACTUAL: 3500MG DAILY
     Route: 048
     Dates: start: 20040916
  2. CISPLATIN [Suspect]
     Indication: GASTRIC CANCER
     Dosage: ACTUAL DOSE: 144MG
     Route: 042
     Dates: start: 20040916
  3. ALDACTONE [Concomitant]
     Dosage: TAKEN IN THE AM
     Route: 048
     Dates: end: 20040918
  4. CELEBREX [Concomitant]
     Dosage: AM AND PM
     Route: 048
     Dates: end: 20040918
  5. NOVALGIN [Concomitant]
  6. UNAT [Concomitant]
     Route: 048
     Dates: end: 20040918
  7. UNAT [Concomitant]
     Route: 048
     Dates: end: 20040918
  8. ANTIHYPERTENSIVE AGENTS [Concomitant]
  9. GASTROINTESTINAL DRUG NOS [Concomitant]
     Dosage: REPORTED AS GASTRIC THERAPEUTICS

REACTIONS (1)
  - DEATH [None]
